FAERS Safety Report 8152100-0 (Version None)
Quarter: 2012Q1

REPORT INFORMATION
  Report Type: 
  Country: None (occurrence: None)
  Receive Date: 20120214
  Receipt Date: 20120201
  Transmission Date: 20120608
  Serious: Yes (Other)
  Sender: FDA-Public Use
  Company Number: MPS1-1000630

PATIENT
  Age: 6 Year
  Sex: Female

DRUGS (1)
  1. ALDURAZYME [Suspect]
     Indication: MUCOPOLYSACCHARIDOSIS
     Dates: start: 20060101

REACTIONS (4)
  - CORNEAL OPACITY [None]
  - PROCEDURAL COMPLICATION [None]
  - TRANSPLANT FAILURE [None]
  - AGITATION [None]
